FAERS Safety Report 10583624 (Version 3)
Quarter: 2015Q1

REPORT INFORMATION
  Report Type: Spontaneous
  Country: US (occurrence: None)
  Receive Date: 20141112
  Receipt Date: 20150115
  Transmission Date: 20150720
  Serious: Yes (Hospitalization, Other)
  Sender: FDA-Public Use
  Company Number: 2014-US-014316

PATIENT
  Age: 49 Year
  Sex: Male

DRUGS (3)
  1. XYREM [Suspect]
     Active Substance: SODIUM OXYBATE
     Indication: NARCOLEPSY
     Dosage: DOSE ADJUSTMENTS
     Route: 048
     Dates: start: 200909, end: 200910
  2. XYREM [Suspect]
     Active Substance: SODIUM OXYBATE
     Indication: CATAPLEXY
     Dosage: DOSE ADJUSTMENTS
     Route: 048
     Dates: start: 200909, end: 200910
  3. NUVIGIL [Concomitant]
     Active Substance: ARMODAFINIL

REACTIONS (11)
  - Asbestosis [None]
  - Musculoskeletal pain [None]
  - Weight decreased [None]
  - Dyspnoea [None]
  - Gastric cancer [None]
  - Leukaemia [None]
  - Shoulder operation [None]
  - Multiple allergies [None]
  - Blood iron decreased [None]
  - Arthropathy [None]
  - Bronchial hyperreactivity [None]

NARRATIVE: CASE EVENT DATE: 20130301
